FAERS Safety Report 5513995-X (Version None)
Quarter: 2007Q4

REPORT INFORMATION
  Report Type: 
  Country: None (occurrence: None)
  Receive Date: 20071107
  Receipt Date: 20061005
  Transmission Date: 20080405
  Serious: Yes (Hospitalization)
  Sender: FDA-Public Use
  Company Number: 2006RL000355

PATIENT
  Age: 62 Year
  Sex: Male
  Weight: 97.5234 kg

DRUGS (6)
  1. RYTHMOL SR [Suspect]
     Indication: ATRIAL FIBRILLATION
     Dosage: 225 MG;BID;PO
     Route: 048
     Dates: start: 20060901, end: 20060901
  2. DIGOXIN [Concomitant]
  3. MAGDALAY [Concomitant]
  4. XANAX [Concomitant]
  5. CRESTOR [Concomitant]
  6. COUMADIN [Concomitant]

REACTIONS (5)
  - CHEST DISCOMFORT [None]
  - MUSCULOSKELETAL PAIN [None]
  - PAIN IN EXTREMITY [None]
  - RASH [None]
  - URTICARIA [None]
